FAERS Safety Report 9886370 (Version 3)
Quarter: 2014Q2

REPORT INFORMATION
  Report Type: Spontaneous
  Country: IT (occurrence: IT)
  Receive Date: 20140210
  Receipt Date: 20140410
  Transmission Date: 20141212
  Serious: Yes (Hospitalization, Other)
  Sender: FDA-Public Use
  Company Number: IT-PFIZER INC-2014035561

PATIENT
  Age: 47 Year
  Sex: Male

DRUGS (4)
  1. LYRICA [Suspect]
     Dosage: 34 CAPSULES (75 MG)
     Route: 048
     Dates: start: 20140123, end: 20140123
  2. CEFUROXIME AXETIL [Suspect]
     Dosage: 3 G, SINGLE
     Route: 048
     Dates: start: 20140123, end: 20140123
  3. DEPAKIN CHRONO [Suspect]
     Dosage: 30 TABLETS (300 MG)
     Route: 048
     Dates: start: 20140123, end: 20140123
  4. NOZINAN [Suspect]
     Dosage: 20 TABLETS (25 MG)
     Route: 048
     Dates: start: 20140123, end: 20140123

REACTIONS (3)
  - Intentional overdose [Recovered/Resolved]
  - Drug abuse [Recovered/Resolved]
  - Sopor [Recovered/Resolved]
